FAERS Safety Report 16168360 (Version 1)
Quarter: 2019Q2

REPORT INFORMATION
  Report Type: Spontaneous
  Country: CN (occurrence: CN)
  Receive Date: 20190408
  Receipt Date: 20190408
  Transmission Date: 20190711
  Serious: Yes (Hospitalization, Other)
  Sender: FDA-Public Use
  Company Number: CN-BAXTER-2019BAX006619

PATIENT
  Age: 57 Year
  Sex: Female
  Weight: 59 kg

DRUGS (6)
  1. 5% GLUCOSE  INJECTION [Suspect]
     Active Substance: DEXTROSE
     Indication: MEDICATION DILUTION
     Dosage: PIRARUBICIN HYDROCHLORIDE INJECTION 97 MG + 5 % GLUCOSE INJECTION 250 ML IVGTT ONCE
     Route: 041
     Dates: start: 20181204, end: 20181204
  2. ENDOXAN [Suspect]
     Active Substance: CYCLOPHOSPHAMIDE
     Indication: BREAST CANCER FEMALE
     Dosage: CYCLOPHOSPHAMIDE FOR INJECTION 0.97 GRAM  + 0.9 % SODIUM CHLORIDE INJECTION 250 ML IVGTT ONCE
     Route: 041
     Dates: start: 20181204, end: 20181204
  3. ENDOXAN [Suspect]
     Active Substance: CYCLOPHOSPHAMIDE
     Route: 065
  4. PIRARUBICIN HYDROCHLORIDE [Suspect]
     Active Substance: PIRARUBICIN HYDROCHLORIDE
     Route: 065
  5. 0.9% SODIUM CHLORIDE INJECTION [Suspect]
     Active Substance: SODIUM CHLORIDE
     Indication: MEDICATION DILUTION
     Dosage: CYCLOPHOSPHAMIDE FOR INJECTION 0.97 G  + 0.9 % SODIUM CHLORIDE INJECTION 250 ML IVGTT ONCE
     Route: 041
     Dates: start: 20181204, end: 20181204
  6. PIRARUBICIN HYDROCHLORIDE [Suspect]
     Active Substance: PIRARUBICIN HYDROCHLORIDE
     Indication: BREAST CANCER FEMALE
     Dosage: DOSAGE FORM: POWDER INJECTION, PIRARUBICIN HYDROCHLORIDE INJECTION 97 MG + 5 % GLUCOSE INJECTION 250
     Route: 041
     Dates: start: 20181204, end: 20181204

REACTIONS (3)
  - Bone marrow failure [Recovered/Resolved]
  - Granulocytopenia [Recovering/Resolving]
  - Bone marrow failure [Recovering/Resolving]

NARRATIVE: CASE EVENT DATE: 20181214
